FAERS Safety Report 11535436 (Version 6)
Quarter: 2017Q3

REPORT INFORMATION
  Report Type: Report from Study
  Country: JP (occurrence: JP)
  Receive Date: 20150922
  Receipt Date: 20170801
  Transmission Date: 20171127
  Serious: Yes (Hospitalization, Other)
  Sender: FDA-Public Use
  Company Number: JP-ASTELLAS-2010JP003969

PATIENT
  Age: 39 Year
  Sex: Female
  Weight: 46 kg

DRUGS (101)
  1. RINDERON V [Suspect]
     Active Substance: BETAMETHASONE VALERATE
     Route: 048
     Dates: start: 20090508, end: 20090823
  2. RINDERON V [Suspect]
     Active Substance: BETAMETHASONE VALERATE
     Route: 048
     Dates: start: 20091204, end: 20091217
  3. ANPLAG [Concomitant]
     Active Substance: SARPOGRELATE
     Indication: RAYNAUD^S PHENOMENON
  4. LIPITOR [Concomitant]
     Active Substance: ATORVASTATIN CALCIUM
     Indication: HYPERCHOLESTEROLAEMIA
     Route: 048
     Dates: start: 20090831, end: 20111227
  5. MAGLAX [Concomitant]
     Active Substance: MAGNESIUM OXIDE
     Indication: CONSTIPATION
     Route: 048
  6. LYRICA [Concomitant]
     Active Substance: PREGABALIN
     Indication: NEURALGIA
     Route: 048
     Dates: start: 20110603
  7. LYRICA [Concomitant]
     Active Substance: PREGABALIN
     Route: 048
  8. PLAVIX [Concomitant]
     Active Substance: CLOPIDOGREL BISULFATE
     Indication: MYOCARDIAL INFARCTION
  9. ARTIST [Concomitant]
     Active Substance: CARVEDILOL
     Indication: PRODUCT USED FOR UNKNOWN INDICATION
     Route: 048
     Dates: start: 20120117
  10. ARGAMATE [Concomitant]
     Active Substance: CALCIUM POLYSTYRENE SULFONATE
     Indication: HYPERKALAEMIA
     Route: 048
     Dates: start: 20120119
  11. NOVO HEPARIN [Concomitant]
     Active Substance: HEPARIN SODIUM
     Indication: ACUTE MYOCARDIAL INFARCTION
     Route: 065
     Dates: start: 20111227, end: 20111229
  12. SAXIZON [Concomitant]
     Active Substance: HYDROCORTISONE SODIUM SUCCINATE
     Indication: ALLERGY PROPHYLAXIS
     Route: 065
     Dates: start: 20141115, end: 20141115
  13. TACROLIMUS. [Suspect]
     Active Substance: TACROLIMUS
     Route: 048
     Dates: start: 20090508, end: 20090528
  14. RINDERON V [Suspect]
     Active Substance: BETAMETHASONE VALERATE
     Route: 048
     Dates: start: 20100611
  15. NEORAL [Concomitant]
     Active Substance: CYCLOSPORINE
     Indication: LUPUS NEPHRITIS
     Route: 048
     Dates: start: 20090929, end: 20091005
  16. ADALAT [Concomitant]
     Active Substance: NIFEDIPINE
     Route: 048
     Dates: start: 20120421
  17. LOXONIN [Concomitant]
     Active Substance: LOXOPROFEN SODIUM
     Route: 048
     Dates: start: 20110916, end: 20111227
  18. CLARITIN [Concomitant]
     Active Substance: LORATADINE
     Indication: PRURITUS
     Route: 048
     Dates: end: 20140711
  19. CARDENALIN [Concomitant]
     Active Substance: DOXAZOSIN MESYLATE
     Indication: PRODUCT USED FOR UNKNOWN INDICATION
     Route: 048
     Dates: start: 20090831, end: 20111227
  20. LYRICA [Concomitant]
     Active Substance: PREGABALIN
     Route: 048
     Dates: start: 20141219, end: 20150206
  21. PRIMPERAN [Concomitant]
     Active Substance: METOCLOPRAMIDE HYDROCHLORIDE
     Indication: NAUSEA
     Route: 048
     Dates: start: 20111209, end: 20111227
  22. CRAVIT [Concomitant]
     Active Substance: LEVOFLOXACIN
     Indication: ENTEROCOLITIS
     Dosage: UNK UNK, UNKNOWN FREQ.
     Route: 048
  23. NU-LOTAN [Concomitant]
     Active Substance: LOSARTAN POTASSIUM
     Indication: PRODUCT USED FOR UNKNOWN INDICATION
     Route: 048
     Dates: start: 20120117, end: 20120119
  24. VENETLIN [Concomitant]
     Active Substance: ALBUTEROL SULFATE
     Indication: ASTHMA
     Dosage: 0.5 ML, ONCE DAILY
     Route: 055
     Dates: start: 20140425, end: 20140425
  25. ATARAX-P                           /00058402/ [Concomitant]
     Active Substance: HYDROXYZINE HYDROCHLORIDE
     Indication: MYOCARDIAL INFARCTION
     Route: 065
     Dates: start: 20141116, end: 20141116
  26. TACROLIMUS. [Suspect]
     Active Substance: TACROLIMUS
     Route: 048
     Dates: start: 20090529, end: 20090823
  27. TACROLIMUS. [Suspect]
     Active Substance: TACROLIMUS
     Route: 048
     Dates: start: 20091102
  28. NEORAL [Concomitant]
     Active Substance: CYCLOSPORINE
     Route: 048
     Dates: start: 20091006, end: 20091014
  29. BLOPRESS [Concomitant]
     Active Substance: CANDESARTAN CILEXETIL
     Route: 048
     Dates: start: 20111230, end: 20120107
  30. MUCODYNE [Concomitant]
     Active Substance: CARBOCYSTEINE
     Indication: PRODUCTIVE COUGH
     Route: 048
     Dates: end: 20111228
  31. LYRICA [Concomitant]
     Active Substance: PREGABALIN
     Route: 048
     Dates: start: 20150206
  32. CLARITH [Concomitant]
     Active Substance: CLARITHROMYCIN
     Indication: UPPER RESPIRATORY TRACT INFLAMMATION
     Route: 048
     Dates: start: 20110826, end: 20131108
  33. PRIMPERAN [Concomitant]
     Active Substance: METOCLOPRAMIDE HYDROCHLORIDE
     Indication: PROPHYLAXIS OF NAUSEA AND VOMITING
     Route: 048
     Dates: start: 20161012, end: 20161026
  34. NITROPEN [Concomitant]
     Active Substance: NITROGLYCERIN
     Indication: MYOCARDIAL INFARCTION
     Dosage: 0.3 MG, AS NEEDED WHEN ATTACKS OCCURRED
     Route: 060
     Dates: start: 20141116, end: 20141116
  35. NITROPEN [Concomitant]
     Active Substance: NITROGLYCERIN
     Dosage: 0.3 MG, AS NEEDED WHEN ATTACKS OCCURRED
     Route: 048
  36. LASIX [Concomitant]
     Active Substance: FUROSEMIDE
     Indication: ACUTE MYOCARDIAL INFARCTION
     Route: 065
     Dates: start: 20111228, end: 20111231
  37. TACROLIMUS. [Suspect]
     Active Substance: TACROLIMUS
     Indication: LUPUS NEPHRITIS
     Route: 048
     Dates: start: 20090417, end: 20090507
  38. RINDERON V [Suspect]
     Active Substance: BETAMETHASONE VALERATE
     Indication: LUPUS NEPHRITIS
     Route: 048
  39. RINDERON V [Suspect]
     Active Substance: BETAMETHASONE VALERATE
     Route: 048
     Dates: start: 20091113, end: 20091119
  40. RINDERON V [Suspect]
     Active Substance: BETAMETHASONE VALERATE
     Route: 048
     Dates: start: 20100108, end: 20100204
  41. SHAKUYAKUKANZOTO [Concomitant]
     Active Substance: HERBALS
     Indication: MUSCLE SPASMS
     Route: 048
  42. PARIET [Concomitant]
     Active Substance: RABEPRAZOLE SODIUM
     Indication: PROPHYLAXIS
     Route: 048
  43. ATARAX-P                           /00058403/ [Concomitant]
     Indication: PRURITUS
     Route: 048
     Dates: end: 20151108
  44. TRYPTANOL                          /00002202/ [Concomitant]
     Active Substance: AMITRIPTYLINE
     Indication: NEURALGIA
     Route: 048
  45. NEUROTROPIN                        /00398601/ [Concomitant]
     Active Substance: CYANOCOBALAMIN\LIDOCAINE HYDROCHLORIDE\PYRIDOXINE HYDROCHLORIDE\THIAMINE HYDROCHLORIDE
     Indication: NEURALGIA
     Route: 048
  46. LASIX [Concomitant]
     Active Substance: FUROSEMIDE
     Indication: PRODUCT USED FOR UNKNOWN INDICATION
     Route: 048
     Dates: end: 20111227
  47. ZYLORIC [Concomitant]
     Active Substance: ALLOPURINOL
     Indication: PRODUCT USED FOR UNKNOWN INDICATION
     Route: 048
  48. LIVALO [Concomitant]
     Active Substance: PITAVASTATIN CALCIUM
     Indication: HYPERCHOLESTEROLAEMIA
     Route: 048
     Dates: start: 20111227
  49. PL [Concomitant]
     Active Substance: ACETAMINOPHEN\CAFFEINE\PROMETHAZINE\SALICYLAMIDE
     Indication: ENTEROCOLITIS
     Dosage: UNK UNK, UNKNOWN FREQ.
     Route: 048
  50. ASTOMIN [Concomitant]
     Active Substance: DIMEMORFAN
     Indication: UPPER RESPIRATORY TRACT INFLAMMATION
     Route: 048
     Dates: start: 20110322, end: 20110328
  51. PLAVIX [Concomitant]
     Active Substance: CLOPIDOGREL BISULFATE
     Indication: PROPHYLAXIS
     Route: 048
     Dates: start: 20111228
  52. RINDERON V [Suspect]
     Active Substance: BETAMETHASONE VALERATE
     Route: 048
     Dates: start: 20090925, end: 20091008
  53. SHAKUYAKUKANZOTO [Concomitant]
     Active Substance: HERBALS
     Indication: MYALGIA
     Dosage: 2.5 MG, AS NEEDED (AT THE TIME OF PAIN)
     Route: 048
     Dates: start: 20141206
  54. ACTONEL [Concomitant]
     Active Substance: RISEDRONATE SODIUM
     Indication: PROPHYLAXIS
     Route: 048
     Dates: end: 20130517
  55. OLMETEC [Concomitant]
     Active Substance: OLMESARTAN MEDOXOMIL
     Indication: PRODUCT USED FOR UNKNOWN INDICATION
     Route: 048
     Dates: start: 20110305
  56. MYSLEE [Concomitant]
     Active Substance: ZOLPIDEM TARTRATE
     Route: 048
     Dates: start: 20150404, end: 20150408
  57. LOXONIN [Concomitant]
     Active Substance: LOXOPROFEN SODIUM
     Indication: ARTHRALGIA
     Route: 048
  58. METHYCOBAL [Concomitant]
     Active Substance: METHYLCOBALAMIN
     Indication: HYPOAESTHESIA
  59. CLARITH [Concomitant]
     Active Substance: CLARITHROMYCIN
     Indication: BRONCHITIS CHRONIC
  60. BAYASPIRIN [Concomitant]
     Active Substance: ASPIRIN
     Indication: PROPHYLAXIS
     Route: 048
     Dates: start: 20111228, end: 20151023
  61. NITROPEN [Concomitant]
     Active Substance: NITROGLYCERIN
     Indication: ACUTE MYOCARDIAL INFARCTION
     Dosage: 0.3 MG, ONCE DAILY
     Route: 048
     Dates: start: 20111227
  62. TRAMAL [Concomitant]
     Active Substance: TRAMADOL
     Indication: NEURALGIA
     Route: 048
     Dates: start: 20150307, end: 20150626
  63. RINDERON V [Suspect]
     Active Substance: BETAMETHASONE VALERATE
     Route: 048
     Dates: start: 20091120, end: 20091203
  64. NEORAL [Concomitant]
     Active Substance: CYCLOSPORINE
     Route: 048
     Dates: start: 20091026, end: 20091031
  65. ACTONEL [Concomitant]
     Active Substance: RISEDRONATE SODIUM
     Route: 048
     Dates: start: 20130614
  66. ADALAT [Concomitant]
     Active Substance: NIFEDIPINE
     Route: 048
     Dates: start: 20130426
  67. ANPLAG [Concomitant]
     Active Substance: SARPOGRELATE
     Indication: PERIPHERAL CIRCULATORY FAILURE
     Route: 048
     Dates: end: 20111227
  68. LAMISIL [Concomitant]
     Active Substance: TERBINAFINE HYDROCHLORIDE
     Indication: TINEA PEDIS
     Route: 048
     Dates: start: 20110527, end: 20131025
  69. PRIMPERAN [Concomitant]
     Active Substance: METOCLOPRAMIDE HYDROCHLORIDE
     Indication: VOMITING
     Route: 048
     Dates: start: 20150307, end: 20150625
  70. NOVO HEPARIN [Concomitant]
     Active Substance: HEPARIN SODIUM
     Indication: MYOCARDIAL INFARCTION
     Route: 065
     Dates: start: 20141116, end: 20141117
  71. ATROPINE. [Concomitant]
     Active Substance: ATROPINE
     Indication: MYOCARDIAL INFARCTION
     Dosage: 0.5 MG, ONCE DAILY
     Route: 065
     Dates: start: 20141116, end: 20141116
  72. RINDERON V [Suspect]
     Active Substance: BETAMETHASONE VALERATE
     Dosage: 2MG/1.75MG, ONCE DAILY
     Route: 048
     Dates: start: 20100416, end: 20100610
  73. BLOPRESS [Concomitant]
     Active Substance: CANDESARTAN CILEXETIL
     Indication: PRODUCT USED FOR UNKNOWN INDICATION
     Route: 048
     Dates: end: 20110304
  74. BAKTAR [Concomitant]
     Active Substance: SULFAMETHOXAZOLE\TRIMETHOPRIM
     Indication: PROPHYLAXIS
     Route: 048
     Dates: start: 20090825
  75. METHYCOBAL [Concomitant]
     Active Substance: METHYLCOBALAMIN
     Indication: NEUROPATHY PERIPHERAL
     Route: 048
     Dates: start: 20091025
  76. SENNOSIDE                          /00571901/ [Concomitant]
     Active Substance: SENNOSIDES A AND B
     Indication: CONSTIPATION
     Route: 048
     Dates: end: 20111227
  77. PL [Concomitant]
     Active Substance: ACETAMINOPHEN\CAFFEINE\PROMETHAZINE\SALICYLAMIDE
     Indication: UPPER RESPIRATORY TRACT INFLAMMATION
     Route: 048
     Dates: start: 20110322, end: 20110328
  78. CRAVIT [Concomitant]
     Active Substance: LEVOFLOXACIN
     Indication: UPPER RESPIRATORY TRACT INFLAMMATION
     Route: 048
     Dates: start: 20110322, end: 20110328
  79. BAYASPIRIN [Concomitant]
     Active Substance: ASPIRIN
     Indication: ACUTE MYOCARDIAL INFARCTION
     Route: 048
     Dates: start: 20111227, end: 20111227
  80. BAYASPIRIN [Concomitant]
     Active Substance: ASPIRIN
     Indication: MYOCARDIAL INFARCTION
  81. PLAVIX [Concomitant]
     Active Substance: CLOPIDOGREL BISULFATE
     Indication: ACUTE MYOCARDIAL INFARCTION
     Route: 048
     Dates: start: 20111227, end: 20111227
  82. MEDICON                            /00048102/ [Concomitant]
     Active Substance: DEXTROMETHORPHAN HYDROBROMIDE
     Indication: COUGH
     Route: 048
     Dates: start: 20140426, end: 20141230
  83. RINDERON V [Suspect]
     Active Substance: BETAMETHASONE VALERATE
     Route: 048
     Dates: start: 20090417, end: 20090507
  84. RINDERON V [Suspect]
     Active Substance: BETAMETHASONE VALERATE
     Route: 048
     Dates: start: 20090824, end: 20090924
  85. RINDERON V [Suspect]
     Active Substance: BETAMETHASONE VALERATE
     Route: 048
     Dates: start: 20091009, end: 20091112
  86. RINDERON V [Suspect]
     Active Substance: BETAMETHASONE VALERATE
     Route: 048
     Dates: start: 20091218, end: 20100107
  87. RINDERON V [Suspect]
     Active Substance: BETAMETHASONE VALERATE
     Route: 048
     Dates: start: 20100205, end: 20100415
  88. ADALAT [Concomitant]
     Active Substance: NIFEDIPINE
     Indication: HYPERTENSION
     Route: 048
  89. MYSLEE [Concomitant]
     Active Substance: ZOLPIDEM TARTRATE
     Indication: INSOMNIA
     Route: 048
  90. MYSLEE [Concomitant]
     Active Substance: ZOLPIDEM TARTRATE
     Route: 048
     Dates: start: 20151023
  91. NEUROTROPIN                        /00398601/ [Concomitant]
     Active Substance: CYANOCOBALAMIN\LIDOCAINE HYDROCHLORIDE\PYRIDOXINE HYDROCHLORIDE\THIAMINE HYDROCHLORIDE
     Indication: NEURALGIA
     Route: 048
     Dates: start: 20141220, end: 20150625
  92. TANATRIL [Concomitant]
     Active Substance: IMIDAPRIL
     Indication: PRODUCT USED FOR UNKNOWN INDICATION
     Route: 048
     Dates: end: 20111227
  93. MAGLAX [Concomitant]
     Active Substance: MAGNESIUM OXIDE
     Route: 048
  94. RULID [Concomitant]
     Active Substance: ROXITHROMYCIN
     Indication: SKIN INFECTION
     Route: 048
     Dates: end: 20110729
  95. BIOFERMIN                          /01617201/ [Concomitant]
     Active Substance: BACILLUS SUBTILIS\LACTOBACILLUS ACIDOPHILUS\STREPTOCOCCUS FAECAIS
     Indication: ENTEROCOLITIS
     Route: 048
     Dates: start: 20110414, end: 20110419
  96. CRAVIT [Concomitant]
     Active Substance: LEVOFLOXACIN
     Indication: BRONCHITIS
     Route: 048
     Dates: start: 20140426, end: 20140430
  97. HUSCODE [Concomitant]
     Active Substance: CHLORPHENIRAMINE MALEAT\DIHYDROCODEINE PHOSPHATE\METHYLEPHEDRINE HYDROCHLORIDE, DL-
     Indication: UPPER RESPIRATORY TRACT INFLAMMATION
     Route: 048
     Dates: start: 20110329, end: 20110407
  98. MAINTATE [Concomitant]
     Active Substance: BISOPROLOL FUMARATE
     Indication: PRODUCT USED FOR UNKNOWN INDICATION
     Route: 048
     Dates: start: 20120107, end: 20120108
  99. FUROSEMIDE. [Concomitant]
     Active Substance: FUROSEMIDE
     Indication: LUPUS NEPHRITIS
     Route: 048
     Dates: start: 20120302
  100. CALONAL [Concomitant]
     Active Substance: ACETAMINOPHEN
     Indication: NEURALGIA
     Dosage: 800 MG, AS NEEDED (AT THE TIME OF PAIN)
     Route: 048
     Dates: start: 20141220, end: 20161012
  101. NICORANDIL [Concomitant]
     Active Substance: NICORANDIL
     Indication: MYOCARDIAL INFARCTION
     Route: 065
     Dates: start: 20141116, end: 20141116

REACTIONS (12)
  - Acute myocardial infarction [Recovering/Resolving]
  - Skin infection [Unknown]
  - Insomnia [Recovered/Resolved]
  - Myocardial infarction [Recovering/Resolving]
  - Bronchitis [Recovering/Resolving]
  - Cough [Recovered/Resolved]
  - Enterocolitis [Recovered/Resolved]
  - Upper respiratory tract inflammation [Recovered/Resolved]
  - Bronchitis chronic [Unknown]
  - Myalgia [Not Recovered/Not Resolved]
  - Asthma [Recovering/Resolving]
  - Tinea pedis [Unknown]

NARRATIVE: CASE EVENT DATE: 20100405
